FAERS Safety Report 20595160 (Version 1)
Quarter: 2022Q1

REPORT INFORMATION
  Report Type: Spontaneous
  Country: IL (occurrence: IL)
  Receive Date: 20220315
  Receipt Date: 20220315
  Transmission Date: 20220423
  Serious: Yes (Hospitalization, Other)
  Sender: FDA-Public Use
  Company Number: IL-GLAXOSMITHKLINE-ILCH2022EME009719

PATIENT
  Age: 50 Year
  Sex: Female

DRUGS (2)
  1. ADVIL [Suspect]
     Active Substance: IBUPROFEN
     Indication: Pain
     Dosage: UNK
     Dates: start: 202112
  2. ACETAMINOPHEN\CAFFEINE\CODEINE PHOSPHATE [Suspect]
     Active Substance: ACETAMINOPHEN\CAFFEINE\CODEINE PHOSPHATE
     Indication: Pain
     Dosage: UNK
     Dates: start: 202112

REACTIONS (10)
  - Gastric perforation [Unknown]
  - Duodenal perforation [Unknown]
  - Abdominal abscess [Unknown]
  - Enteritis infectious [Unknown]
  - Leg amputation [Unknown]
  - Hypoaesthesia [Unknown]
  - Abdominal pain [Unknown]
  - Constipation [Unknown]
  - Bacterial infection [Unknown]
  - Localised infection [Unknown]

NARRATIVE: CASE EVENT DATE: 20211224
